FAERS Safety Report 20228837 (Version 1)
Quarter: 2021Q4

REPORT INFORMATION
  Report Type: Spontaneous
  Country: US (occurrence: US)
  Receive Date: 20211225
  Receipt Date: 20211225
  Transmission Date: 20220303
  Serious: No
  Sender: FDA-Public Use
  Company Number: US-SA-SAC20211223000193

PATIENT
  Sex: Male

DRUGS (9)
  1. DUPIXENT [Suspect]
     Active Substance: DUPILUMAB
     Indication: Dermatitis atopic
     Dosage: 300 MG, QOW
     Route: 058
     Dates: start: 20210421
  2. ACRIVASTINE [Concomitant]
     Active Substance: ACRIVASTINE
     Dosage: 25MG
  3. EUCERIN [UREA] [Concomitant]
  4. METOPROLOL [Concomitant]
     Active Substance: METOPROLOL
     Dosage: 100MG
  5. OMEPRAZOLE [Concomitant]
     Active Substance: OMEPRAZOLE
     Dosage: 40MG
  6. ROSUVASTATIN [Concomitant]
     Active Substance: ROSUVASTATIN
     Dosage: 40MG
  7. TACROLIMUS [Concomitant]
     Active Substance: TACROLIMUS
  8. BETAMETHASONE [Concomitant]
     Active Substance: BETAMETHASONE
  9. TRIAMCINOLONE [Concomitant]
     Active Substance: TRIAMCINOLONE

REACTIONS (2)
  - Fatigue [Unknown]
  - Somnolence [Unknown]
